FAERS Safety Report 9989321 (Version 2)
Quarter: 2014Q1

REPORT INFORMATION
  Report Type: Spontaneous
  Country: NZ (occurrence: NZ)
  Receive Date: 20140310
  Receipt Date: 20140326
  Transmission Date: 20141002
  Serious: Yes (Other)
  Sender: FDA-Public Use
  Company Number: NZ-ROCHE-1360535

PATIENT
  Age: 56 Year
  Sex: Female
  Weight: 64.5 kg

DRUGS (2)
  1. KADCYLA [Suspect]
     Indication: BREAST CANCER
     Route: 042
     Dates: start: 20131127, end: 20140224
  2. HERCEPTIN [Concomitant]

REACTIONS (1)
  - Malignant neoplasm progression [Unknown]
